FAERS Safety Report 9553239 (Version 1)
Quarter: 2013Q2

REPORT INFORMATION
  Report Type: Spontaneous
  Country: US (occurrence: None)
  Receive Date: 20130507
  Receipt Date: 20130507
  Transmission Date: 20140414
  Serious: Yes (Other)
  Sender: FDA-Public Use
  Company Number: 2135225-2013-00064

PATIENT
  Age: 34 Year
  Sex: Female

DRUGS (1)
  1. ASCLERA [Suspect]
     Indication: SCLEROTHERAPY
     Dosage: 7CC, 1ST TX, IV
     Route: 042
     Dates: start: 20121205

REACTIONS (1)
  - Urticaria [None]
